FAERS Safety Report 24458277 (Version 1)
Quarter: 2024Q4

REPORT INFORMATION
  Report Type: Spontaneous
  Country: ES (occurrence: ES)
  Receive Date: 20241018
  Receipt Date: 20241018
  Transmission Date: 20250114
  Serious: No
  Sender: ROCHE
  Company Number: ES-ROCHE-3516035

PATIENT
  Age: 7 Decade
  Sex: Male

DRUGS (6)
  1. RITUXIMAB [Suspect]
     Active Substance: RITUXIMAB
     Indication: CANOMAD syndrome
     Route: 065
  2. PREDNISONE [Suspect]
     Active Substance: PREDNISONE
     Indication: CANOMAD syndrome
     Route: 048
  3. IBRUTINIB [Concomitant]
     Active Substance: IBRUTINIB
  4. DARATUMUMAB [Concomitant]
     Active Substance: DARATUMUMAB
     Dosage: EVERY 2 WEEKS FOR THE SECOND AND THIRD MONTH, AND MONTHLY THEREAFTER, UNTIL NOW (12 MONTHS FROM DARA
     Route: 042
  5. DARATUMUMAB [Concomitant]
     Active Substance: DARATUMUMAB
     Dosage: EVERY 2 WEEKS FOR THE SECOND AND THIRD MONTH, AND MONTHLY THEREAFTER, UNTIL NOW (12 MONTHS FROM DARA
     Route: 042
  6. ELTROMBOPAG [Concomitant]
     Active Substance: ELTROMBOPAG

REACTIONS (2)
  - Respiratory tract infection [Unknown]
  - COVID-19 [Unknown]
